FAERS Safety Report 23760215 (Version 1)
Quarter: 2024Q2

REPORT INFORMATION
  Report Type: Spontaneous
  Country: US (occurrence: US)
  Receive Date: 20240419
  Receipt Date: 20240419
  Transmission Date: 20240717
  Serious: No
  Sender: FDA-Public Use
  Company Number: US-UROGEN PHARMA LTD.-2024-UGN-000041

PATIENT

DRUGS (3)
  1. JELMYTO [Suspect]
     Active Substance: MITOMYCIN
     Indication: Product used for unknown indication
     Dosage: ONCE A WEEK (INSTILLATION)
     Route: 065
     Dates: start: 20240222, end: 20240222
  2. JELMYTO [Suspect]
     Active Substance: MITOMYCIN
     Dosage: ONCE A WEEK (INSTILLATION)
     Route: 065
     Dates: start: 20240229, end: 20240229
  3. JELMYTO [Suspect]
     Active Substance: MITOMYCIN
     Dosage: ONCE A WEEK (INSTILLATION)
     Route: 065
     Dates: start: 20240307, end: 20240307

REACTIONS (1)
  - Adverse reaction [Unknown]

NARRATIVE: CASE EVENT DATE: 20240307
